FAERS Safety Report 20891353 (Version 1)
Quarter: 2022Q2

REPORT INFORMATION
  Report Type: Spontaneous
  Country: US (occurrence: US)
  Receive Date: 20220530
  Receipt Date: 20220530
  Transmission Date: 20220720
  Serious: Yes (Other)
  Sender: FDA-Public Use
  Company Number: US-TEVA-2022-US-2040385

PATIENT
  Age: 80 Year
  Sex: Female

DRUGS (2)
  1. CLONAZEPAM [Suspect]
     Active Substance: CLONAZEPAM
     Dosage: TAKING ONE QUARTER OF A TABLET ONCE A DAY
  2. CLONAZEPAM [Suspect]
     Active Substance: CLONAZEPAM

REACTIONS (3)
  - Loss of consciousness [Recovered/Resolved]
  - Somnolence [Recovered/Resolved]
  - Incorrect dose administered [Unknown]
